FAERS Safety Report 15482956 (Version 3)
Quarter: 2018Q4

REPORT INFORMATION
  Report Type: Spontaneous
  Country: US (occurrence: US)
  Receive Date: 20181010
  Receipt Date: 20181107
  Transmission Date: 20190205
  Serious: No
  Sender: FDA-Public Use
  Company Number: US-PFIZER INC-2018409345

PATIENT
  Age: 55 Year
  Sex: Female
  Weight: 70 kg

DRUGS (1)
  1. IBRANCE [Suspect]
     Active Substance: PALBOCICLIB
     Indication: BREAST CANCER METASTATIC
     Dosage: 125 MG, CYCLIC( DAYS 1 THROUGH 21 EVERY 28 DAYS)(D1-21 Q 28 DAYS)
     Route: 048
     Dates: start: 20180918

REACTIONS (6)
  - Headache [Unknown]
  - Fatigue [Unknown]
  - Stomatitis [Unknown]
  - Alopecia [Unknown]
  - Plantar fasciitis [Unknown]
  - White blood cell count decreased [Unknown]
